FAERS Safety Report 21168913 (Version 1)
Quarter: 2022Q3

REPORT INFORMATION
  Report Type: Spontaneous
  Country: CN (occurrence: CN)
  Receive Date: 20220803
  Receipt Date: 20220803
  Transmission Date: 20221026
  Serious: Yes (Hospitalization)
  Sender: FDA-Public Use
  Company Number: CN-NAPPMUNDI-GBR-2022-0100317

PATIENT
  Age: 61 Year
  Sex: Male

DRUGS (2)
  1. OXYCONTIN [Suspect]
     Active Substance: OXYCODONE HYDROCHLORIDE
     Indication: Pain
     Dosage: 20 MILLIGRAM, Q12H (EVERY 12 HOURS)
     Route: 048
     Dates: start: 20220622, end: 20220712
  2. CEFTRIAXONE SODIUM [Concomitant]
     Active Substance: CEFTRIAXONE SODIUM
     Indication: Infection
     Dosage: 2.0 GRAM, BID (EVERY 12 HOURS)
     Route: 042
     Dates: start: 20220711, end: 20220714

REACTIONS (6)
  - Coma [Recovering/Resolving]
  - Pyrexia [Unknown]
  - Pyrexia [Unknown]
  - Toxicity to various agents [Unknown]
  - Miosis [Recovering/Resolving]
  - Constipation [Unknown]

NARRATIVE: CASE EVENT DATE: 20220711
